FAERS Safety Report 18503967 (Version 1)
Quarter: 2020Q4

REPORT INFORMATION
  Report Type: Report from Study
  Country: US (occurrence: US)
  Receive Date: 20201114
  Receipt Date: 20201114
  Transmission Date: 20210114
  Serious: Yes (Other)
  Sender: FDA-Public Use
  Company Number: US-SHIRE-US202000851AA

PATIENT
  Sex: Female

DRUGS (1)
  1. VELAGLUCERASE ALFA [Suspect]
     Active Substance: VELAGLUCERASE ALFA
     Indication: GAUCHER^S DISEASE
     Dosage: 15 DOSAGE FORM, 2/WEEK
     Route: 042
     Dates: start: 20111021

REACTIONS (3)
  - Product dose omission issue [Recovering/Resolving]
  - SARS-CoV-2 test positive [Recovering/Resolving]
  - General physical health deterioration [Not Recovered/Not Resolved]
